FAERS Safety Report 20846946 (Version 1)
Quarter: 2022Q2

REPORT INFORMATION
  Report Type: Spontaneous
  Country: PT (occurrence: PT)
  Receive Date: 20220519
  Receipt Date: 20220519
  Transmission Date: 20220720
  Serious: Yes (Hospitalization, Other)
  Sender: FDA-Public Use
  Company Number: PT-TEVA-2022-PT-2036575

PATIENT
  Age: 21 Year
  Sex: Female

DRUGS (3)
  1. IBUPROFEN [Suspect]
     Active Substance: IBUPROFEN
     Route: 048
  2. METAMIZOLE MAGNESIUM [Concomitant]
     Active Substance: METAMIZOLE MAGNESIUM
     Route: 048
  3. DESLORATADINE [Concomitant]
     Active Substance: DESLORATADINE
     Route: 048

REACTIONS (3)
  - Gastrointestinal erosion [Recovered/Resolved]
  - Haemorrhage [Recovered/Resolved]
  - Shock haemorrhagic [Recovered/Resolved]
